FAERS Safety Report 5786822-3 (Version None)
Quarter: 2008Q2

REPORT INFORMATION
  Report Type: 
  Country: None (occurrence: None)
  Receive Date: 20080618
  Receipt Date: 20080528
  Transmission Date: 20081010
  Serious: Yes (Disabling)
  Sender: FDA-Public Use
  Company Number: 2008S1009086

PATIENT
  Age: 70 Year
  Sex: Female

DRUGS (1)
  1. PRAVASTATIN [Suspect]

REACTIONS (1)
  - POLYMYOSITIS [None]
